FAERS Safety Report 9021854 (Version 2)
Quarter: 2015Q4

REPORT INFORMATION
  Report Type: Spontaneous
  Country: FR (occurrence: FR)
  Receive Date: 20130118
  Receipt Date: 20151123
  Transmission Date: 20160305
  Serious: Yes (Hospitalization)
  Sender: FDA-Public Use
  Company Number: FR-GE HEALTHCARE MEDICAL DIAGNOSTICS-VISP-NO-1003S-0120

PATIENT
  Age: 24 Year
  Sex: Male

DRUGS (8)
  1. PERFALGAN [Concomitant]
     Active Substance: ACETAMINOPHEN
  2. VISIPAQUE [Suspect]
     Active Substance: IODIXANOL
     Indication: THERAPEUTIC EMBOLISATION
     Dosage: DOSE NOT REPORTED
     Route: 013
     Dates: start: 20100205, end: 20100205
  3. VISIPAQUE [Suspect]
     Active Substance: IODIXANOL
     Indication: ANEURYSM RUPTURED
  4. IOMERON [Suspect]
     Active Substance: IOMEPROL
     Route: 042
     Dates: start: 20100205, end: 20100205
  5. HEPARIN [Concomitant]
     Active Substance: HEPARIN SODIUM
  6. VISIPAQUE [Suspect]
     Active Substance: IODIXANOL
     Indication: THERAPEUTIC PROCEDURE
  7. NIMOTOP [Suspect]
     Active Substance: NIMODIPINE
     Route: 048
     Dates: start: 20100208, end: 20100212
  8. KEPPRA [Suspect]
     Active Substance: LEVETIRACETAM
     Route: 048
     Dates: start: 20100205, end: 20100206

REACTIONS (2)
  - Acute generalised exanthematous pustulosis [Unknown]
  - Contrast media reaction [None]

NARRATIVE: CASE EVENT DATE: 20100206
